FAERS Safety Report 10519318 (Version 6)
Quarter: 2015Q2

REPORT INFORMATION
  Report Type: Spontaneous
  Country: US (occurrence: US)
  Receive Date: 20141015
  Receipt Date: 20150525
  Transmission Date: 20150821
  Serious: Yes (Other)
  Sender: FDA-Public Use
  Company Number: US-JNJFOC-20141006838

PATIENT
  Age: 70 Year
  Sex: Female

DRUGS (6)
  1. STELARA [Suspect]
     Active Substance: USTEKINUMAB
     Indication: PSORIASIS
     Route: 058
  2. CLOBETASOL [Concomitant]
     Active Substance: CLOBETASOL
     Route: 065
  3. INSULIN [Suspect]
     Active Substance: INSULIN NOS
     Indication: DIABETES MELLITUS
     Route: 058
  4. CLOBEX [Concomitant]
     Active Substance: CLOBETASOL PROPIONATE
     Route: 061
  5. STELARA [Suspect]
     Active Substance: USTEKINUMAB
     Indication: PSORIASIS
     Dosage: THE PATINET HAD RECEIVED A TOTAL OF 5 INJECTIONS AT THE TIME OF THIS REPORT
     Route: 058
     Dates: start: 20131203
  6. STELARA [Suspect]
     Active Substance: USTEKINUMAB
     Indication: PSORIASIS
     Route: 058
     Dates: start: 20140108, end: 20141003

REACTIONS (1)
  - Tuberculosis [Recovered/Resolved]

NARRATIVE: CASE EVENT DATE: 20141003
